FAERS Safety Report 8604096-2 (Version None)
Quarter: 2012Q3

REPORT INFORMATION
  Report Type: 
  Country: None (occurrence: None)
  Receive Date: 20120820
  Receipt Date: 20120813
  Transmission Date: 20120928
  Serious: No
  Sender: FDA-Public Use
  Company Number: US-BIOGENIDEC-2012BI031476

PATIENT
  Age: 52 Year
  Sex: Female

DRUGS (2)
  1. REBIF [Concomitant]
     Indication: MULTIPLE SCLEROSIS
     Dates: start: 20120401
  2. TYSABRI [Suspect]
     Indication: MULTIPLE SCLEROSIS
     Route: 042
     Dates: start: 20081008, end: 20120326

REACTIONS (5)
  - TEMPERATURE INTOLERANCE [None]
  - NAUSEA [None]
  - MALAISE [None]
  - PAIN [None]
  - ASTHENIA [None]
